FAERS Safety Report 5469741-1 (Version None)
Quarter: 2007Q3

REPORT INFORMATION
  Report Type: 
  Country: None (occurrence: None)
  Receive Date: 20070926
  Receipt Date: 20070926
  Transmission Date: 20080115
  Serious: Yes (Hospitalization)
  Sender: FDA-Public Use
  Company Number: None

PATIENT
  Sex: Female
  Weight: 71.36 kg

DRUGS (2)
  1. CARBOPLATIN [Suspect]
     Dosage: 590 MG
     Dates: end: 20070906
  2. TAXOL [Suspect]
     Dosage: 312 MG
     Dates: end: 20070906

REACTIONS (3)
  - NAUSEA [None]
  - SMALL INTESTINAL OBSTRUCTION [None]
  - VOMITING [None]
